FAERS Safety Report 9305432 (Version 1)
Quarter: 2013Q2

REPORT INFORMATION
  Report Type: Spontaneous
  Country: CA (occurrence: CA)
  Receive Date: 20130523
  Receipt Date: 20130523
  Transmission Date: 20140414
  Serious: Yes (Other)
  Sender: FDA-Public Use
  Company Number: CA-OTSUKA-US-2013-10966

PATIENT
  Age: 78 Month
  Sex: Male

DRUGS (9)
  1. BUSULFEX [Suspect]
     Indication: STEM CELL TRANSPLANT
     Route: 042
  2. CYCLOPHOSPHAMIDE [Concomitant]
     Indication: STEM CELL TRANSPLANT
  3. ETOPOSIDE [Concomitant]
     Indication: STEM CELL TRANSPLANT
  4. CYCLOSPORINE [Concomitant]
     Indication: PROPHYLAXIS AGAINST GRAFT VERSUS HOST DISEASE
  5. METHYLPREDNISOLONE [Concomitant]
     Indication: PROPHYLAXIS AGAINST GRAFT VERSUS HOST DISEASE
  6. GANCICLOVIR [Concomitant]
     Indication: ANTIVIRAL PROPHYLAXIS
  7. FLUCONAZOLE [Concomitant]
     Indication: ANTIFUNGAL PROPHYLAXIS
  8. PENCILLIN [Concomitant]
     Indication: ANTIBIOTIC PROPHYLAXIS
  9. THYMOGLOBULINE [Concomitant]

REACTIONS (7)
  - Venoocclusive disease [Unknown]
  - Graft versus host disease [Unknown]
  - Epstein-Barr virus infection [Unknown]
  - Herpes simplex [Unknown]
  - Central venous catheterisation [Unknown]
  - Viral infection [Unknown]
  - Renal impairment [Unknown]
